FAERS Safety Report 4854228-7 (Version None)
Quarter: 2005Q4

REPORT INFORMATION
  Report Type: 
  Country: None (occurrence: None)
  Receive Date: 20051213
  Receipt Date: 20051213
  Transmission Date: 20060501
  Serious: Yes (Other)
  Sender: FDA-Public Use
  Company Number: None

PATIENT
  Sex: Male
  Weight: 45.3597 kg

DRUGS (1)
  1. STRATTERA [Suspect]
     Indication: ATTENTION DEFICIT/HYPERACTIVITY DISORDER
     Dosage: 40MG DAILY PO   APPROXIMATELY 6-8 WEEKS
     Route: 048
     Dates: start: 20040301, end: 20040501

REACTIONS (3)
  - MOOD ALTERED [None]
  - PERSONALITY CHANGE [None]
  - SUICIDAL IDEATION [None]
